FAERS Safety Report 8916215 (Version 1)
Quarter: 2012Q4

REPORT INFORMATION
  Report Type: 
  Country: JP (occurrence: JP)
  Receive Date: 20121120
  Receipt Date: 20121120
  Transmission Date: 20130627
  Serious: Yes (Other)
  Sender: FDA-Public Use
  Company Number: JP-GLAXOSMITHKLINE-B0843618A

PATIENT
  Age: 10 Year
  Sex: Male

DRUGS (2)
  1. ACETAMINOPHEN [Suspect]
     Indication: NASOPHARYNGITIS
     Route: 065
  2. ACICLOVIR [Suspect]
     Indication: STEVENS-JOHNSON SYNDROME
     Route: 065

REACTIONS (10)
  - Stevens-Johnson syndrome [Unknown]
  - Toxic epidermal necrolysis [Unknown]
  - Blister [Unknown]
  - Skin exfoliation [Unknown]
  - Ulcerative keratitis [Unknown]
  - Conjunctivitis [Unknown]
  - Pyrexia [Unknown]
  - Lip swelling [Unknown]
  - Erythema [Unknown]
  - Conjunctival hyperaemia [Unknown]
